FAERS Safety Report 10421507 (Version 1)
Quarter: 2014Q3

REPORT INFORMATION
  Report Type: Spontaneous
  Country: FR (occurrence: FR)
  Receive Date: 20140901
  Receipt Date: 20140901
  Transmission Date: 20150326
  Serious: Yes (Life-Threatening, Hospitalization)
  Sender: FDA-Public Use
  Company Number: FR-MERCK-1408FRA016144

PATIENT
  Age: 83 Year
  Sex: Male

DRUGS (2)
  1. KETAMINE PANPHARMA [Suspect]
     Active Substance: KETAMINE
     Indication: SEDATION
     Dosage: 150 MG, ONCE
     Route: 042
     Dates: start: 20140809
  2. ESMERON [Suspect]
     Active Substance: ROCURONIUM BROMIDE
     Indication: SEDATION
     Dosage: 100 MG, ONCE
     Route: 042
     Dates: start: 20140809

REACTIONS (1)
  - Cardio-respiratory arrest [Recovering/Resolving]

NARRATIVE: CASE EVENT DATE: 20140809
